FAERS Safety Report 19643367 (Version 2)
Quarter: 2021Q4

REPORT INFORMATION
  Report Type: Report from Study
  Country: BR (occurrence: BR)
  Receive Date: 20210730
  Receipt Date: 20211005
  Transmission Date: 20220303
  Serious: Yes (Death)
  Sender: FDA-Public Use
  Company Number: BR-BIOGEN-2021BI01034763

PATIENT
  Age: 60 Year
  Sex: Female

DRUGS (2)
  1. TYSABRI [Suspect]
     Active Substance: NATALIZUMAB
     Indication: Multiple sclerosis
     Route: 042
     Dates: start: 20190920, end: 20210724
  2. PREGABALIN [Concomitant]
     Active Substance: PREGABALIN
     Indication: Myalgia
     Route: 065
     Dates: end: 20210724

REACTIONS (5)
  - Myocardial infarction [Fatal]
  - Seizure [Fatal]
  - Cardiac arrest [Fatal]
  - Asthenia [Recovered/Resolved]
  - Influenza [Recovered/Resolved]

NARRATIVE: CASE EVENT DATE: 20210715
